FAERS Safety Report 16587655 (Version 1)
Quarter: 2019Q3

REPORT INFORMATION
  Report Type: Spontaneous
  Country: US (occurrence: US)
  Receive Date: 20190717
  Receipt Date: 20190717
  Transmission Date: 20191004
  Serious: No
  Sender: FDA-Public Use
  Company Number: US-JNJFOC-20190719646

PATIENT
  Age: 29 Year
  Sex: Female

DRUGS (2)
  1. APRISO [Concomitant]
     Active Substance: MESALAMINE
  2. REMICADE [Suspect]
     Active Substance: INFLIXIMAB
     Indication: COLITIS ULCERATIVE
     Route: 042
     Dates: start: 201809

REACTIONS (3)
  - Infusion related reaction [Unknown]
  - Dizziness [Unknown]
  - Dyspnoea [Unknown]
